FAERS Safety Report 9011786 (Version 1)
Quarter: 2013Q1

REPORT INFORMATION
  Report Type: Spontaneous
  Country: US (occurrence: US)
  Receive Date: 20130113
  Receipt Date: 20130113
  Transmission Date: 20140127
  Serious: Yes (Other)
  Sender: FDA-Public Use
  Company Number: US-009507513-0907USA03630

PATIENT
  Age: 6 Year
  Sex: Female
  Weight: 27.22 kg

DRUGS (3)
  1. SINGULAIR [Suspect]
     Indication: HYPERSENSITIVITY
     Dosage: 5 MG, QD
     Route: 048
     Dates: start: 20080501, end: 20080523
  2. ZYRTEC [Suspect]
     Indication: HYPERSENSITIVITY
     Dosage: 10 MG, QD
     Route: 048
     Dates: start: 20080605, end: 20080608
  3. VERAMYST [Concomitant]
     Dosage: 2 UNK, QD
     Route: 055
     Dates: start: 20080501, end: 20080525

REACTIONS (13)
  - Suicidal ideation [Unknown]
  - Anxiety [Recovered/Resolved]
  - Dysphagia [Recovered/Resolved]
  - Dyspnoea [Unknown]
  - Hallucinations, mixed [Recovered/Resolved]
  - Obsessive-compulsive disorder [Not Recovered/Not Resolved]
  - Palpitations [Recovered/Resolved]
  - Panic attack [Recovered/Resolved]
  - Paraesthesia [Unknown]
  - Restlessness [Recovered/Resolved]
  - Sensory disturbance [Recovered/Resolved]
  - Sleep terror [Recovered/Resolved]
  - Stomatitis [Recovered/Resolved]
